FAERS Safety Report 4557714-2 (Version None)
Quarter: 2005Q1

REPORT INFORMATION
  Report Type: 
  Country: None (occurrence: None)
  Receive Date: 20050118
  Receipt Date: 20050104
  Transmission Date: 20050727
  Serious: No
  Sender: FDA-Public Use
  Company Number: 9638

PATIENT
  Age: 61 Year

DRUGS (2)
  1. DACARBAZINE [Suspect]
     Indication: MALIGNANT MELANOMA
     Dosage: IV
     Route: 042
  2. VINDESINE [Suspect]
     Indication: MALIGNANT MELANOMA
     Dosage: IV
     Route: 042

REACTIONS (1)
  - DELUSIONAL DISORDER, PERSECUTORY TYPE [None]
